FAERS Safety Report 7817154-7 (Version None)
Quarter: 2011Q4

REPORT INFORMATION
  Report Type: 
  Country: None (occurrence: None)
  Receive Date: 20111017
  Receipt Date: 20111017
  Transmission Date: 20120403
  Serious: Yes (Hospitalization)
  Sender: FDA-Public Use
  Company Number: None

PATIENT
  Age: 47 Year
  Sex: Female
  Weight: 71.214 kg

DRUGS (1)
  1. SPIRONOLACTONE [Suspect]
     Indication: ACNE
     Dosage: ONE PILL
     Route: 048
     Dates: start: 20100115, end: 20100428

REACTIONS (6)
  - CARDIAC DISORDER [None]
  - GASTRITIS EROSIVE [None]
  - OFF LABEL USE [None]
  - CHOLELITHIASIS [None]
  - EROSIVE OESOPHAGITIS [None]
  - ANGINA PECTORIS [None]
